FAERS Safety Report 10227807 (Version 1)
Quarter: 2014Q2

REPORT INFORMATION
  Report Type: Spontaneous
  Country: US (occurrence: US)
  Receive Date: 20140610
  Receipt Date: 20140610
  Transmission Date: 20141212
  Serious: No
  Sender: FDA-Public Use
  Company Number: US-BAYER-2014-086803

PATIENT
  Age: 20 Year
  Sex: Female
  Weight: 53 kg

DRUGS (3)
  1. ALEVE CAPLET [Suspect]
     Indication: ANALGESIC THERAPY
     Route: 048
  2. ALEVE CAPLET [Suspect]
     Indication: ANALGESIC THERAPY
     Dosage: 3 DF, HS
     Route: 048
     Dates: start: 20140608, end: 20140608
  3. ALEVE CAPLET [Suspect]
     Indication: ANALGESIC THERAPY
     Dosage: 3 DF, ONCE
     Route: 048
     Dates: start: 20140609, end: 20140609

REACTIONS (4)
  - Drug ineffective [None]
  - Incorrect dose administered [None]
  - Incorrect dose administered [None]
  - Intentional product misuse [None]
